FAERS Safety Report 12500801 (Version 2)
Quarter: 2016Q3

REPORT INFORMATION
  Report Type: Report from Study
  Country: JP (occurrence: JP)
  Receive Date: 20160627
  Receipt Date: 20160705
  Transmission Date: 20161109
  Serious: Yes (Death)
  Sender: FDA-Public Use
  Company Number: JP-TAIHO ONCOLOGY INC-JPTT160561

PATIENT
  Age: 62 Year
  Sex: Male
  Weight: 54 kg

DRUGS (1)
  1. LONSURF [Suspect]
     Active Substance: TIPIRACIL HYDROCHLORIDE\TRIFLURIDINE
     Indication: COLON CANCER METASTATIC
     Route: 048
     Dates: start: 20150723, end: 20150728

REACTIONS (4)
  - Tachycardia [Recovering/Resolving]
  - Death [Fatal]
  - Abdominal pain [Unknown]
  - Atrial flutter [Recovering/Resolving]

NARRATIVE: CASE EVENT DATE: 20150729
